FAERS Safety Report 5646195-3 (Version None)
Quarter: 2008Q1

REPORT INFORMATION
  Report Type: 
  Country: None (occurrence: None)
  Receive Date: 20080227
  Receipt Date: 20080212
  Transmission Date: 20080703
  Serious: Yes (Hospitalization)
  Sender: FDA-Public Use
  Company Number: S08-SWI-00710-01

PATIENT
  Age: 61 Year
  Sex: Male

DRUGS (7)
  1. ESCITALOPRAM [Suspect]
     Indication: DEPRESSION
     Dosage: 20 MG QD PO
     Route: 048
  2. MARCUMAR [Suspect]
     Indication: ATRIAL FIBRILLATION
     Dosage: 1 MG QD PO
     Route: 048
     Dates: start: 20060718
  3. MARCUMAR [Suspect]
     Indication: ATRIAL FLUTTER
     Dosage: 1 MG QD PO
     Route: 048
     Dates: start: 20060718
  4. ASPIRIN [Suspect]
     Indication: CEREBRAL INFARCTION
     Dosage: 100 MG QD PO
     Route: 048
     Dates: start: 20060101, end: 20070919
  5. ALDACTONE [Concomitant]
  6. METOPROLOL TARTRATE [Concomitant]
  7. TOREM (TORASEMIDE) [Concomitant]

REACTIONS (4)
  - GASTRIC POLYPS [None]
  - GASTROINTESTINAL HAEMORRHAGE [None]
  - HAEMORRHAGIC ANAEMIA [None]
  - INTERNATIONAL NORMALISED RATIO INCREASED [None]
